FAERS Safety Report 14185265 (Version 1)
Quarter: 2017Q4

REPORT INFORMATION
  Report Type: Report from Study
  Country: US (occurrence: US)
  Receive Date: 20171114
  Receipt Date: 20171114
  Transmission Date: 20180321
  Serious: Yes (Hospitalization)
  Sender: FDA-Public Use
  Company Number: US-EISAI MEDICAL RESEARCH-EC-2015-009452

PATIENT
  Age: 65 Year
  Sex: Female
  Weight: 64 kg

DRUGS (11)
  1. VALIUM [Concomitant]
     Active Substance: DIAZEPAM
  2. SYNTHROID [Concomitant]
     Active Substance: LEVOTHYROXINE SODIUM
  3. PREDNISONE. [Concomitant]
     Active Substance: PREDNISONE
  4. LENVIMA [Suspect]
     Active Substance: LENVATINIB
     Indication: THYROID CANCER
     Route: 048
     Dates: start: 20150804, end: 201710
  5. FLEXERIL [Concomitant]
     Active Substance: CYCLOBENZAPRINE HYDROCHLORIDE
  6. OXYCODONE-ACETAMINOPHEN [Concomitant]
     Active Substance: ACETAMINOPHEN\OXYCODONE HYDROCHLORIDE
  7. METOPROLOL TARTRATE. [Concomitant]
     Active Substance: METOPROLOL TARTRATE
  8. VITAMIN D3 [Concomitant]
     Active Substance: CHOLECALCIFEROL
  9. GABAPENTIN. [Concomitant]
     Active Substance: GABAPENTIN
  10. IMODIUM [Concomitant]
     Active Substance: LOPERAMIDE HYDROCHLORIDE
  11. TRAMADOL. [Concomitant]
     Active Substance: TRAMADOL

REACTIONS (21)
  - Weight decreased [Unknown]
  - Blood calcium decreased [Unknown]
  - Influenza like illness [Recovered/Resolved]
  - Diarrhoea [Not Recovered/Not Resolved]
  - Vomiting [Recovered/Resolved]
  - Clavicle fracture [Not Recovered/Not Resolved]
  - Pain [Not Recovered/Not Resolved]
  - Blood pressure fluctuation [Unknown]
  - Retching [Unknown]
  - Headache [Not Recovered/Not Resolved]
  - Constipation [Recovered/Resolved]
  - Pollakiuria [Recovered/Resolved]
  - Dehydration [Unknown]
  - Muscle spasms [Unknown]
  - Nausea [Not Recovered/Not Resolved]
  - Renal injury [Unknown]
  - Rash pruritic [Not Recovered/Not Resolved]
  - Hypertension [Recovering/Resolving]
  - Fracture [Not Recovered/Not Resolved]
  - Fall [Recovered/Resolved]
  - Sinusitis [Not Recovered/Not Resolved]

NARRATIVE: CASE EVENT DATE: 201508
